FAERS Safety Report 23355190 (Version 1)
Quarter: 2024Q1

REPORT INFORMATION
  Report Type: Report from Study
  Country: ES (occurrence: ES)
  Receive Date: 20240102
  Receipt Date: 20240102
  Transmission Date: 20240410
  Serious: Yes (Other)
  Sender: FDA-Public Use
  Company Number: ES-HALEON-ESCH2023HLN067613

PATIENT

DRUGS (1)
  1. IBUPROFEN [Suspect]
     Active Substance: IBUPROFEN
     Indication: Analgesic therapy
     Dosage: UNK

REACTIONS (2)
  - Drug-induced liver injury [Recovered/Resolved]
  - Hepatocellular injury [Recovered/Resolved]
